FAERS Safety Report 9503423 (Version 1)
Quarter: 2013Q3

REPORT INFORMATION
  Report Type: Spontaneous
  Country: US (occurrence: US)
  Receive Date: 20130906
  Receipt Date: 20130906
  Transmission Date: 20140515
  Serious: No
  Sender: FDA-Public Use
  Company Number: US-BAYER-2013-108045

PATIENT
  Sex: 0

DRUGS (3)
  1. ALEVE CAPLET [Suspect]
     Dosage: UNK
  2. TYLENOL PM [Concomitant]
  3. ORAJEL [Concomitant]

REACTIONS (2)
  - Drug ineffective [None]
  - Respiratory tract congestion [None]
